FAERS Safety Report 6109343-7 (Version None)
Quarter: 2009Q1

REPORT INFORMATION
  Report Type: 
  Country: None (occurrence: None)
  Receive Date: 20090306
  Receipt Date: 20090306
  Transmission Date: 20090719
  Serious: No
  Sender: FDA-Public Use
  Company Number: None

PATIENT
  Age: 64 Year
  Sex: Female
  Weight: 69.8539 kg

DRUGS (2)
  1. TAXOTERE [Suspect]
     Indication: LUNG NEOPLASM MALIGNANT
     Dosage: 60 MG EVERY THREE WEEKS IV
     Route: 042
     Dates: start: 20080314, end: 20090303
  2. CARBOPLATIN [Suspect]
     Dosage: 210 EVERY THREE WEEKS IV
     Route: 042

REACTIONS (2)
  - NAUSEA [None]
  - VOMITING [None]
